FAERS Safety Report 11649876 (Version 5)
Quarter: 2016Q1

REPORT INFORMATION
  Report Type: Spontaneous
  Country: US (occurrence: US)
  Receive Date: 20151021
  Receipt Date: 20160114
  Transmission Date: 20160525
  Serious: Yes (Death, Hospitalization, Other)
  Sender: FDA-Public Use
  Company Number: US-JNJFOC-20151012755

PATIENT
  Age: 85 Year
  Sex: Male
  Weight: 88.45 kg

DRUGS (11)
  1. METOPROLOL. [Concomitant]
     Active Substance: METOPROLOL
     Indication: HEART RATE ABNORMAL
     Dosage: 50 (UNSPECIFIED UNITS)
     Route: 048
  2. TAMSULOSIN [Concomitant]
     Active Substance: TAMSULOSIN
     Dosage: USED GREATER THAN 1 YEAR
     Route: 048
  3. VITAMIN B5 [Concomitant]
     Active Substance: PANTOTHENIC ACID
     Route: 048
  4. SYNTHROID [Concomitant]
     Active Substance: LEVOTHYROXINE SODIUM
     Dosage: USED GREATER THAN 1 YEAR
     Route: 048
  5. TOPROL XL [Concomitant]
     Active Substance: METOPROLOL SUCCINATE
     Dosage: FOR 4 DAYS
     Route: 048
  6. CALCIUM CITRATE [Concomitant]
     Active Substance: CALCIUM CITRATE
     Dosage: USED GREATER THAN 1 YEAR
     Route: 048
  7. XARELTO [Suspect]
     Active Substance: RIVAROXABAN
     Indication: ATRIAL FIBRILLATION
     Route: 048
     Dates: end: 20151014
  8. PRESERVISION AREDS [Concomitant]
     Active Substance: MINERALS\VITAMINS
     Dosage: USED GREATER THAN 1 YEAR
     Route: 048
  9. XARELTO [Suspect]
     Active Substance: RIVAROXABAN
     Indication: CEREBROVASCULAR ACCIDENT PROPHYLAXIS
     Route: 048
     Dates: end: 20151014
  10. FIORINAL [Concomitant]
     Active Substance: ASPIRIN\BUTALBITAL\CAFFEINE
     Dosage: 4 (UNSPECIFIED UNIT)
     Route: 048
  11. VITAMINE C [Concomitant]
     Active Substance: ASCORBIC ACID
     Dosage: FOR GREATER THAN 1 YEAR
     Route: 048

REACTIONS (5)
  - Asthenia [Unknown]
  - Dementia [Unknown]
  - Chest pain [Unknown]
  - Fall [Unknown]
  - Haemorrhagic stroke [Fatal]

NARRATIVE: CASE EVENT DATE: 201509
